FAERS Safety Report 23616315 (Version 1)
Quarter: 2024Q1

REPORT INFORMATION
  Report Type: Spontaneous
  Country: US (occurrence: US)
  Receive Date: 20240311
  Receipt Date: 20240311
  Transmission Date: 20240410
  Serious: Yes (Hospitalization, Other)
  Sender: FDA-Public Use
  Company Number: US-MLMSERVICE-20240223-4845169-1

PATIENT
  Age: 66 Year
  Sex: Male

DRUGS (2)
  1. HEPARIN [Suspect]
     Active Substance: HEPARIN SODIUM
     Indication: Antiplatelet therapy
     Dosage: DRIP
  2. CLOPIDOGREL [Suspect]
     Active Substance: CLOPIDOGREL BISULFATE
     Indication: Antiplatelet therapy

REACTIONS (4)
  - Spinal cord haematoma [Unknown]
  - Subdural haematoma [Unknown]
  - Subarachnoid haemorrhage [Unknown]
  - Intraventricular haemorrhage [Unknown]
